FAERS Safety Report 16567522 (Version 1)
Quarter: 2019Q3

REPORT INFORMATION
  Report Type: Spontaneous
  Country: US (occurrence: US)
  Receive Date: 20190712
  Receipt Date: 20190712
  Transmission Date: 20191004
  Serious: No
  Sender: FDA-Public Use
  Company Number: US-MYLANLABS-2019M1060216

PATIENT
  Age: 74 Year
  Sex: Female
  Weight: 82 kg

DRUGS (1)
  1. WIXELA INHUB [Suspect]
     Active Substance: FLUTICASONE PROPIONATE\SALMETEROL XINAFOATE
     Indication: ASTHMA
     Dosage: UNK
     Dates: start: 201906, end: 20190624

REACTIONS (4)
  - Product expiration date issue [Unknown]
  - Product dose omission [Recovered/Resolved]
  - Product lot number issue [Unknown]
  - Device issue [Unknown]

NARRATIVE: CASE EVENT DATE: 201906
